FAERS Safety Report 8438078-0 (Version None)
Quarter: 2012Q2

REPORT INFORMATION
  Report Type: 
  Country: None (occurrence: None)
  Receive Date: 20120614
  Receipt Date: 20120608
  Transmission Date: 20120825
  Serious: Yes (Hospitalization, Other)
  Sender: FDA-Public Use
  Company Number: BR-ABBOTT-12P-020-0944187-00

PATIENT
  Sex: Male
  Weight: 89 kg

DRUGS (9)
  1. CAPTOPRIL [Concomitant]
     Indication: HYPERTENSION
     Route: 048
     Dates: start: 20120401
  2. OMEPRAZOLE [Concomitant]
     Indication: GASTRIC DISORDER
  3. DICLOFENAC [Concomitant]
     Indication: ARTHRITIS
     Route: 048
     Dates: start: 20120401
  4. OMEPRAZOLE [Concomitant]
     Indication: GASTRITIS PROPHYLAXIS
     Route: 048
     Dates: start: 20120401
  5. METHOTREXATE [Concomitant]
     Indication: ARTHRITIS
     Dosage: ON MONDAY
     Route: 048
     Dates: start: 20120401
  6. LEUCOVORIN CALCIUM [Concomitant]
     Indication: ARTHRITIS
     Route: 048
     Dates: start: 20120401
  7. OMEPRAZOLE [Concomitant]
     Indication: PROPHYLAXIS
  8. HUMIRA [Suspect]
     Indication: PSORIATIC ARTHROPATHY
     Route: 058
     Dates: start: 20120504
  9. PREDNISONE TAB [Concomitant]
     Indication: ARTHRITIS
     Route: 048
     Dates: start: 20120401

REACTIONS (2)
  - GALLBLADDER OPERATION [None]
  - ASCITES [None]
